FAERS Safety Report 24753210 (Version 1)
Quarter: 2024Q4

REPORT INFORMATION
  Report Type: Spontaneous
  Country: JP (occurrence: JP)
  Receive Date: 20241219
  Receipt Date: 20241219
  Transmission Date: 20250115
  Serious: Yes (Other)
  Sender: GILEAD
  Company Number: JP-GSKJP-JP2024JPN147627

PATIENT
  Age: 3 Decade
  Sex: Female

DRUGS (1)
  1. VIREAD [Suspect]
     Active Substance: TENOFOVIR DISOPROXIL FUMARATE
     Indication: Viral hepatitis carrier
     Dosage: UNK
     Route: 048

REACTIONS (2)
  - Hepatitis B [Recovered/Resolved]
  - Exposure during pregnancy [Recovered/Resolved]
